FAERS Safety Report 5375765-5 (Version None)
Quarter: 2007Q2

REPORT INFORMATION
  Report Type: 
  Country: None (occurrence: None)
  Receive Date: 20070628
  Receipt Date: 20070615
  Transmission Date: 20071010
  Serious: Yes (Other)
  Sender: FDA-Public Use
  Company Number: 430027M07USA

PATIENT
  Age: 64 Year
  Sex: Male

DRUGS (12)
  1. NOVANTRONE [Suspect]
     Indication: OFF LABEL USE
     Dosage: 25 MG, 1 IN 1 DAYS, INTRAVENOUS (NOT OTHERWISE SPECIFIED)
     Route: 042
     Dates: start: 20070430, end: 20070430
  2. IXABEPILONE (IXABEPILONE) [Suspect]
     Dosage: 74 MG, 1 IN 1 DAYS, INTRAVENOUS (NOT OTHERWISE SPECIFIED)
     Route: 042
     Dates: start: 20070430, end: 20070430
  3. PREDNISONE [Suspect]
     Dosage: 300 MG, 2 IN 1 DAYS, ORAL
     Route: 048
     Dates: start: 20070430, end: 20070530
  4. ALDACTONE [Concomitant]
  5. AMITRIPTYLINE HCL [Concomitant]
  6. FUROSEMIDE [Concomitant]
  7. LORAZEPAM [Concomitant]
  8. OXYCODONE HCL [Concomitant]
  9. OXYCONTIN [Concomitant]
  10. POTASSIUM (POTASSIUM) [Concomitant]
  11. PROCHLORPERAZINE MALEATE [Concomitant]
  12. SENNA (SENNA ALEXANDRINA) [Concomitant]

REACTIONS (2)
  - GRANULOCYTE COUNT DECREASED [None]
  - NEUTROPHIL COUNT DECREASED [None]
